FAERS Safety Report 7710053-0 (Version None)
Quarter: 2011Q3

REPORT INFORMATION
  Report Type: 
  Country: None (occurrence: None)
  Receive Date: 20110825
  Receipt Date: 20110818
  Transmission Date: 20111222
  Serious: Yes (Other)
  Sender: FDA-Public Use
  Company Number: PHHY2011NL74779

PATIENT
  Age: 15 Month
  Sex: Female

DRUGS (4)
  1. PROPRANOLOL [Suspect]
     Indication: HAEMANGIOMA
     Dosage: 2 MG/KG, UNK
  2. PREDNISONE [Suspect]
     Dosage: 0.05 MG/KG PER DAY
  3. PREDNISONE [Suspect]
     Dosage: 4 MG/KG PER DAY
     Route: 048
  4. PREDNISONE [Suspect]
     Dosage: 0.1 MG/KG PER DAY

REACTIONS (4)
  - HYPOGLYCAEMIA [None]
  - BLOOD PRESSURE DIASTOLIC DECREASED [None]
  - ADRENAL INSUFFICIENCY [None]
  - UNRESPONSIVE TO STIMULI [None]
